FAERS Safety Report 8408536-3 (Version None)
Quarter: 2012Q2

REPORT INFORMATION
  Report Type: 
  Country: None (occurrence: None)
  Receive Date: 20120604
  Receipt Date: 20120521
  Transmission Date: 20120825
  Serious: No
  Sender: FDA-Public Use
  Company Number: US-BAYER-2012-053161

PATIENT
  Age: 76 Year
  Sex: Female

DRUGS (1)
  1. LEUKINE [Suspect]
     Indication: SKIN ULCER
     Dosage: UNK
     Route: 061
     Dates: start: 20120517

REACTIONS (1)
  - APPLICATION SITE PAIN [None]
